FAERS Safety Report 6105672-1 (Version None)
Quarter: 2009Q1

REPORT INFORMATION
  Report Type: 
  Country: None (occurrence: None)
  Receive Date: 20090306
  Receipt Date: 20090224
  Transmission Date: 20090719
  Serious: Yes (Hospitalization)
  Sender: FDA-Public Use
  Company Number: JP-AMGEN-US336949

PATIENT
  Sex: Female
  Weight: 39 kg

DRUGS (11)
  1. ENBREL [Suspect]
     Indication: RHEUMATOID ARTHRITIS
     Route: 058
     Dates: start: 20080402
  2. BASEN [Concomitant]
     Dosage: UNSPECIFIED
     Route: 048
  3. ASPARTATE CALCIUM [Concomitant]
     Dosage: UNSPECIFIED
     Route: 048
  4. ALFACALCIDOL [Concomitant]
     Dosage: UNSPECIFIED
     Route: 048
  5. FOSAMAX [Concomitant]
     Dosage: UNSPECIFIED
     Route: 048
  6. FOLIAMIN [Concomitant]
     Dosage: UNSPECIFIED
     Route: 048
  7. METHOTREXATE [Concomitant]
     Indication: RHEUMATOID ARTHRITIS
     Route: 048
  8. PREDNISOLONE [Concomitant]
     Indication: RHEUMATOID ARTHRITIS
     Route: 048
     Dates: end: 20080523
  9. PREDNISOLONE [Concomitant]
     Dates: start: 20080524
  10. LIPITOR [Concomitant]
     Dosage: UNSPECIFIED
     Route: 048
  11. GLAKAY [Concomitant]
     Dosage: UNSPECIFIED
     Route: 048

REACTIONS (2)
  - CONDITION AGGRAVATED [None]
  - RHEUMATOID ARTHRITIS [None]
